FAERS Safety Report 8423313-5 (Version None)
Quarter: 2012Q2

REPORT INFORMATION
  Report Type: 
  Country: None (occurrence: None)
  Receive Date: 20120608
  Receipt Date: 20120530
  Transmission Date: 20120825
  Serious: Yes (Hospitalization)
  Sender: FDA-Public Use
  Company Number: US-ACTELION-A-NJ2011-50843

PATIENT

DRUGS (8)
  1. ALDACTONE [Concomitant]
  2. TORSEMIDE [Concomitant]
  3. IMODIUM [Concomitant]
  4. POTASSIUM CHLORIDE [Concomitant]
  5. METOLAZONE [Concomitant]
  6. NEXIUM [Concomitant]
  7. EPOPROSTENOL SODIUM [Suspect]
     Indication: PULMONARY ARTERIAL HYPERTENSION
     Dosage: 24 NG/KG, PER MIN
     Route: 041
     Dates: start: 20101222
  8. OXYGEN [Concomitant]

REACTIONS (11)
  - PORTAL HYPERTENSION [None]
  - HEPATIC CIRRHOSIS [None]
  - HEPATIC CONGESTION [None]
  - CONDITION AGGRAVATED [None]
  - RENAL FAILURE [None]
  - HAEMATOMA [None]
  - OESOPHAGOGASTRIC FUNDOPLASTY [None]
  - RIGHT VENTRICULAR FAILURE [None]
  - ASCITES [None]
  - PULMONARY ARTERIAL HYPERTENSION [None]
  - PLEURAL EFFUSION [None]
